FAERS Safety Report 4787085-8 (Version None)
Quarter: 2005Q3

REPORT INFORMATION
  Report Type: 
  Country: None (occurrence: None)
  Receive Date: 20050930
  Receipt Date: 20050920
  Transmission Date: 20060218
  Serious: Yes (Hospitalization)
  Sender: FDA-Public Use
  Company Number: 2005AL003693

PATIENT
  Age: 46 Year
  Sex: Male

DRUGS (10)
  1. SERAX [Suspect]
     Dosage: PO
     Route: 048
     Dates: start: 20050101
  2. BI-PROFENID ({NULL}) [Suspect]
     Indication: METASTASES TO BONE
     Dosage: PO
     Route: 048
  3. DUROGESIC ({NULL}) [Suspect]
     Indication: METASTASES TO BONE
     Dosage: TDER
     Route: 062
  4. HYCAMTIN [Suspect]
     Indication: SMALL CELL LUNG CANCER STAGE UNSPECIFIED
     Dosage: IV
     Route: 042
     Dates: start: 20050502, end: 20050627
  5. ZOMETA [Suspect]
     Dosage: 4 MG; Q3W; IV
     Route: 042
     Dates: start: 20050321, end: 20050530
  6. ETOPOSIDE [Concomitant]
  7. CISPLATIN [Concomitant]
  8. SKENAN [Concomitant]
  9. OXYCODONE HCL [Concomitant]
  10. NEORECORMON [Concomitant]

REACTIONS (3)
  - ASEPTIC NECROSIS BONE [None]
  - METASTASES TO BONE [None]
  - MUCOSAL ULCERATION [None]
